FAERS Safety Report 25916932 (Version 1)
Quarter: 2025Q4

REPORT INFORMATION
  Report Type: Report from Study
  Country: US (occurrence: US)
  Receive Date: 20251014
  Receipt Date: 20251014
  Transmission Date: 20260117
  Serious: Yes (Hospitalization, Other)
  Sender: ALEXION PHARMACEUTICALS
  Company Number: US-AstraZeneca-CH-00953187A

PATIENT
  Age: 31 Year
  Sex: Male

DRUGS (2)
  1. ULTOMIRIS [Suspect]
     Active Substance: RAVULIZUMAB-CWVZ
     Indication: Paroxysmal nocturnal haemoglobinuria
     Dosage: UNK
     Route: 065
     Dates: start: 20200630, end: 20240327
  2. PEGCETACOPLAN [Concomitant]
     Active Substance: PEGCETACOPLAN
     Dosage: UNK
     Route: 065

REACTIONS (8)
  - Paroxysmal nocturnal haemoglobinuria [Unknown]
  - Infection [Unknown]
  - Illness [Unknown]
  - Renal failure [Unknown]
  - Pneumonia bacterial [Unknown]
  - Diarrhoea [Recovered/Resolved]
  - Nausea [Recovered/Resolved]
  - Vomiting [Recovered/Resolved]

NARRATIVE: CASE EVENT DATE: 20250916
